FAERS Safety Report 5035016-8 (Version None)
Quarter: 2006Q2

REPORT INFORMATION
  Report Type: 
  Country: None (occurrence: None)
  Receive Date: 20060518
  Receipt Date: 20050907
  Transmission Date: 20061013
  Serious: Yes (Other)
  Sender: FDA-Public Use
  Company Number: 2005125445

PATIENT
  Sex: Female

DRUGS (1)
  1. DEPO-PROVERA [Suspect]
     Indication: ILL-DEFINED DISORDER
     Dosage: 150 MG (150 MG,1ST INJECTION),INTRAMUSCULAR
     Route: 030
     Dates: start: 20000613, end: 20000613

REACTIONS (1)
  - OSTEOPENIA [None]
